FAERS Safety Report 6288835-4 (Version None)
Quarter: 2009Q3

REPORT INFORMATION
  Report Type: 
  Country: None (occurrence: None)
  Receive Date: 20090729
  Receipt Date: 20071112
  Transmission Date: 20100115
  Serious: Yes (Other)
  Sender: FDA-Public Use
  Company Number: US-ASTRAZENECA-2006UW08884

PATIENT
  Age: 24909 Day
  Sex: Male
  Weight: 144.5 kg

DRUGS (21)
  1. SEROQUEL [Suspect]
     Indication: BIPOLAR DISORDER
     Dosage: 200 MG TO 1000 MG
     Route: 048
     Dates: start: 20041201, end: 20051001
  2. SEROQUEL [Suspect]
     Indication: SCHIZOPHRENIA
     Dosage: 200 MG TO 1000 MG
     Route: 048
     Dates: start: 20041201, end: 20051001
  3. SEROQUEL [Suspect]
     Dosage: 200-1000 MG
     Route: 048
     Dates: start: 20041201, end: 20051207
  4. SEROQUEL [Suspect]
     Dosage: 200-1000 MG
     Route: 048
     Dates: start: 20041201, end: 20051207
  5. RISPERDAL [Suspect]
     Indication: BIPOLAR DISORDER
     Dates: start: 20000101, end: 20040101
  6. RISPERDAL [Suspect]
     Indication: SCHIZOPHRENIA
     Dates: start: 20000101, end: 20040101
  7. ZYPREXA [Suspect]
     Indication: BIPOLAR DISORDER
     Dates: start: 19990101, end: 20000101
  8. ZYPREXA [Suspect]
     Indication: SCHIZOPHRENIA
     Dates: start: 19990101, end: 20000101
  9. ZOCOR [Concomitant]
     Dosage: 20-80 MG
     Route: 048
  10. ASPIRIN [Concomitant]
     Route: 048
  11. TRICOR [Concomitant]
     Dosage: 145-160 MG
     Route: 048
  12. ACTOS [Concomitant]
     Indication: DIABETES MELLITUS
     Dosage: 30-45 MG
     Route: 048
  13. LITHIUM CITRATE [Concomitant]
     Dosage: 750-900 MG
  14. HYTRIN [Concomitant]
     Indication: BENIGN PROSTATIC HYPERPLASIA
     Dosage: 5-10 MG
     Route: 048
  15. ABILIFY [Concomitant]
     Dosage: 15-50 MG
     Route: 048
     Dates: end: 20070725
  16. ACCUPRIL [Concomitant]
     Dosage: 20-40 MG
     Route: 048
  17. RESTORIL [Concomitant]
     Route: 048
     Dates: end: 20050201
  18. IMDUR [Concomitant]
     Route: 048
  19. LOPRESSOR [Concomitant]
     Dosage: 50-300 MG
     Route: 048
  20. TEGRETOL [Concomitant]
     Dosage: 200-800 MG
     Route: 048
     Dates: end: 20051207
  21. FLOMAX [Concomitant]
     Dosage: 0.4 MG  AT HOUR OF SLEEP
     Route: 048

REACTIONS (3)
  - DIABETES MELLITUS [None]
  - DIABETIC NEUROPATHY [None]
  - TYPE 1 DIABETES MELLITUS [None]
